FAERS Safety Report 5125299-8 (Version None)
Quarter: 2006Q4

REPORT INFORMATION
  Report Type: 
  Country: None (occurrence: None)
  Receive Date: 20061006
  Receipt Date: 20060928
  Transmission Date: 20070319
  Serious: Yes (Hospitalization, Other)
  Sender: FDA-Public Use
  Company Number: 2006088118

PATIENT
  Sex: Male
  Weight: 109.7705 kg

DRUGS (5)
  1. ZOLOFT [Suspect]
     Indication: DEPRESSION
     Dosage: (1 IN 1 D), ORAL
     Route: 048
     Dates: start: 19970101
  2. LYRICA [Suspect]
     Indication: INSOMNIA
     Dosage: 50 MG (50 MG, 1 IN 1 D), ORAL
     Route: 048
     Dates: start: 20060711, end: 20060701
  3. LYRICA [Suspect]
     Indication: PAIN IN EXTREMITY
     Dosage: 50 MG (50 MG, 1 IN 1 D), ORAL
     Route: 048
     Dates: start: 20060711, end: 20060701
  4. VERAPAMIL [Concomitant]
  5. SYNTHROID [Concomitant]

REACTIONS (14)
  - ABNORMAL DREAMS [None]
  - ASTHENIA [None]
  - DIABETES MELLITUS [None]
  - DIZZINESS [None]
  - DRUG INEFFECTIVE [None]
  - EYELID OEDEMA [None]
  - FATIGUE [None]
  - HEMIPARESIS [None]
  - IMPAIRED DRIVING ABILITY [None]
  - INSOMNIA [None]
  - PAIN IN EXTREMITY [None]
  - POLYNEUROPATHY [None]
  - SOMNOLENCE [None]
  - TRANSIENT ISCHAEMIC ATTACK [None]
